FAERS Safety Report 25391569 (Version 5)
Quarter: 2025Q4

REPORT INFORMATION
  Report Type: Report from Study
  Country: CA (occurrence: CA)
  Receive Date: 20250603
  Receipt Date: 20251210
  Transmission Date: 20260117
  Serious: Yes (Other)
  Sender: TAKEDA
  Company Number: CA-TAKEDA-2025TUS039507

PATIENT
  Age: 38 Year
  Sex: Female
  Weight: 93.8 kg

DRUGS (6)
  1. VEDOLIZUMAB [Suspect]
     Active Substance: VEDOLIZUMAB
     Indication: Colitis ulcerative
     Dosage: 300 MILLIGRAM
  2. VEDOLIZUMAB [Suspect]
     Active Substance: VEDOLIZUMAB
     Dosage: 300 MILLIGRAM, Q4WEEKS
     Dates: start: 20221118
  3. VEDOLIZUMAB [Suspect]
     Active Substance: VEDOLIZUMAB
     Dosage: 300 MILLIGRAM, Q4WEEKS
  4. VEDOLIZUMAB [Suspect]
     Active Substance: VEDOLIZUMAB
     Dosage: 300 MILLIGRAM, Q4WEEKS
  5. Salofalk [Concomitant]
     Dosage: UNK UNK, QD
     Dates: start: 202104
  6. Cortiment [Concomitant]
     Dosage: 20 MILLIGRAM, QD
     Dates: start: 202112

REACTIONS (13)
  - Haematochezia [Recovering/Resolving]
  - Colitis ulcerative [Recovering/Resolving]
  - Abdominal pain upper [Recovered/Resolved]
  - Frequent bowel movements [Recovering/Resolving]
  - Inappropriate schedule of product administration [Not Recovered/Not Resolved]
  - Gastrooesophageal reflux disease [Recovered/Resolved]
  - Endometriosis [Not Recovered/Not Resolved]
  - Jaundice [Recovered/Resolved]
  - Intervertebral disc protrusion [Unknown]
  - Sciatica [Unknown]
  - Sensory loss [Unknown]
  - Cholelithiasis [Unknown]
  - Abdominal pain [Recovering/Resolving]

NARRATIVE: CASE EVENT DATE: 20250501
